FAERS Safety Report 8273629-0 (Version None)
Quarter: 2012Q2

REPORT INFORMATION
  Report Type: 
  Country: None (occurrence: None)
  Receive Date: 20120411
  Receipt Date: 20120209
  Transmission Date: 20120825
  Serious: No
  Sender: FDA-Public Use
  Company Number: US-TEVA-321978USA

PATIENT
  Sex: Female
  Weight: 72.64 kg

DRUGS (4)
  1. LEXAPRO [Concomitant]
  2. NUVIGIL [Suspect]
     Indication: SLEEP APNOEA SYNDROME
     Dosage: 125 MILLIGRAM;
     Route: 048
     Dates: start: 20120201, end: 20120201
  3. NUVIGIL [Suspect]
     Dosage: 250 MILLIGRAM;
     Route: 048
     Dates: start: 20120201, end: 20120201
  4. BUPROPION HCL [Concomitant]

REACTIONS (2)
  - LIP SWELLING [None]
  - LIP PAIN [None]
